FAERS Safety Report 16083357 (Version 2)
Quarter: 2019Q3

REPORT INFORMATION
  Report Type: Report from Study
  Country: US (occurrence: US)
  Receive Date: 20190318
  Receipt Date: 20190705
  Transmission Date: 20191004
  Serious: Yes (Other)
  Sender: FDA-Public Use
  Company Number: US-ROCHE-2283853

PATIENT
  Age: 46 Year
  Sex: Female
  Weight: 66.28 kg

DRUGS (7)
  1. CELEBREX [Concomitant]
     Active Substance: CELECOXIB
     Dosage: FOR 1 WEEK
     Route: 065
     Dates: start: 201809
  2. ZITHROMYCIN [Concomitant]
     Active Substance: AZITHROMYCIN ANHYDROUS
     Dosage: 2 TABLETS 1ST DAY AND THEN 1 EVERY FOR 5 DAYS
     Route: 048
     Dates: start: 201905
  3. MODAFINIL. [Concomitant]
     Active Substance: MODAFINIL
     Indication: ASTHENIA
     Dosage: ON AND OFF STARTED APPROXIMATELY 6 MONTHS AGO
     Route: 048
  4. ACETAZOLAMIDE. [Concomitant]
     Active Substance: ACETAZOLAMIDE
     Indication: MENIERE^S DISEASE
  5. OCREVUS [Suspect]
     Active Substance: OCRELIZUMAB
     Indication: RELAPSING-REMITTING MULTIPLE SCLEROSIS
     Dosage: ONGOING:YES
     Route: 042
     Dates: start: 201706
  6. ASPIRIN [ACETYLSALICYLIC ACID] [Suspect]
     Active Substance: ASPIRIN
     Indication: PAIN
     Route: 048
     Dates: start: 201809, end: 201809
  7. MODAFINIL. [Concomitant]
     Active Substance: MODAFINIL
     Indication: FATIGUE

REACTIONS (11)
  - Osteoarthritis [Not Recovered/Not Resolved]
  - Upper respiratory tract infection [Recovered/Resolved]
  - Dehydration [Recovered/Resolved]
  - Insomnia [Recovered/Resolved]
  - Meniere^s disease [Recovered/Resolved]
  - Syncope [Recovered/Resolved]
  - Epigastric discomfort [Recovered/Resolved]
  - Otitis media [Recovered/Resolved]
  - Sinusitis bacterial [Recovering/Resolving]
  - Influenza [Recovering/Resolving]
  - Immunodeficiency [Unknown]

NARRATIVE: CASE EVENT DATE: 2018
